FAERS Safety Report 17721004 (Version 1)
Quarter: 2020Q2

REPORT INFORMATION
  Report Type: Report from Study
  Country: US (occurrence: US)
  Receive Date: 20200428
  Receipt Date: 20200428
  Transmission Date: 20200714
  Serious: Yes (Hospitalization, Other)
  Sender: FDA-Public Use
  Company Number: US-ACTELION-A-NJ2015-113712

PATIENT
  Age: 52 Year
  Sex: Female
  Weight: 90.7 kg

DRUGS (8)
  1. TRACLEER [Suspect]
     Active Substance: BOSENTAN
     Dosage: 125 MG, BID
     Route: 048
  2. SILDENAFIL. [Concomitant]
     Active Substance: SILDENAFIL
  3. TRACLEER [Suspect]
     Active Substance: BOSENTAN
     Indication: PULMONARY ARTERIAL HYPERTENSION
     Dosage: UNK
     Route: 048
  4. ADEMPAS [Concomitant]
     Active Substance: RIOCIGUAT
  5. DILTIAZEM. [Concomitant]
     Active Substance: DILTIAZEM
  6. REMODULIN [Suspect]
     Active Substance: TREPROSTINIL
     Indication: PRODUCT USED FOR UNKNOWN INDICATION
     Route: 058
  7. TYVASO [Concomitant]
     Active Substance: TREPROSTINIL
  8. ELIQUIS [Concomitant]
     Active Substance: APIXABAN

REACTIONS (17)
  - Catheter site warmth [Unknown]
  - Menopause [Unknown]
  - Malaise [Unknown]
  - Diarrhoea [Unknown]
  - Nausea [Unknown]
  - Dyspnoea [Unknown]
  - Hypotension [Unknown]
  - Catheter site pain [Unknown]
  - Catheter site haemorrhage [Unknown]
  - Cardiac failure congestive [Unknown]
  - Pain in jaw [Unknown]
  - Condition aggravated [Unknown]
  - Respiratory tract infection [Unknown]
  - Cough [Unknown]
  - Catheter site induration [Unknown]
  - Lung transplant [Recovered/Resolved]
  - Pruritus [Unknown]

NARRATIVE: CASE EVENT DATE: 20190404
